FAERS Safety Report 8495333-6 (Version None)
Quarter: 2012Q3

REPORT INFORMATION
  Report Type: 
  Country: None (occurrence: None)
  Receive Date: 20120709
  Receipt Date: 20120629
  Transmission Date: 20120928
  Serious: Yes (Other)
  Sender: FDA-Public Use
  Company Number: US-MSD JAPAN-1207USA00099

PATIENT

DRUGS (3)
  1. ISENTRESS [Suspect]
     Indication: HIV INFECTION
     Dosage: 400 MG, BID
     Route: 048
     Dates: start: 20100201
  2. MK-0152 [Concomitant]
  3. PRINIVIL [Concomitant]

REACTIONS (1)
  - NEOPLASM MALIGNANT [None]
